FAERS Safety Report 8183945-9 (Version None)
Quarter: 2012Q1

REPORT INFORMATION
  Report Type: 
  Country: None (occurrence: None)
  Receive Date: 20120305
  Receipt Date: 20120302
  Transmission Date: 20120608
  Serious: No
  Sender: FDA-Public Use
  Company Number: US-PFIZER INC-2012051582

PATIENT
  Sex: Female
  Weight: 58.957 kg

DRUGS (8)
  1. TRAZODONE [Concomitant]
     Indication: ANXIETY
     Dosage: UNK
  2. CHANTIX [Suspect]
     Indication: SMOKING CESSATION THERAPY
     Dosage: 0.5 MG, 1X/DAY
     Route: 048
     Dates: start: 20120201, end: 20120201
  3. IBUPROFEN [Concomitant]
     Indication: PAIN
     Dosage: UNK
  4. CHANTIX [Suspect]
     Dosage: 1 MG, 2X/DAY
     Route: 048
     Dates: start: 20120201, end: 20120201
  5. TRAZODONE [Concomitant]
     Indication: DEPRESSION
  6. CLONIDINE [Concomitant]
     Dosage: UNK
  7. NAPROXEN [Concomitant]
     Indication: ANKLE FRACTURE
     Dosage: UNK
  8. CHANTIX [Suspect]
     Dosage: UNK
     Route: 048
     Dates: start: 20120201, end: 20120201

REACTIONS (3)
  - DIARRHOEA [None]
  - MALAISE [None]
  - VOMITING [None]
